FAERS Safety Report 11760427 (Version 1)
Quarter: 2015Q4

REPORT INFORMATION
  Report Type: Spontaneous
  Country: US (occurrence: US)
  Receive Date: 20151120
  Receipt Date: 20151120
  Transmission Date: 20160304
  Serious: No
  Sender: FDA-Public Use
  Company Number: US-ASTRAZENECA-2015SF08607

PATIENT
  Sex: Male
  Weight: 108 kg

DRUGS (2)
  1. CRESTOR [Suspect]
     Active Substance: ROSUVASTATIN CALCIUM
     Indication: BLOOD CHOLESTEROL
     Route: 048
  2. HERBAL NOS [Concomitant]
     Active Substance: HERBALS
     Indication: BLOOD CHOLESTEROL INCREASED

REACTIONS (2)
  - Muscle spasms [Recovered/Resolved]
  - Intentional product misuse [Unknown]
